FAERS Safety Report 6335774-6 (Version None)
Quarter: 2009Q3

REPORT INFORMATION
  Report Type: 
  Country: None (occurrence: None)
  Receive Date: 20090828
  Receipt Date: 20090814
  Transmission Date: 20100115
  Serious: Yes (Other)
  Sender: FDA-Public Use
  Company Number: 8050520

PATIENT
  Age: 54 Year
  Sex: Female

DRUGS (9)
  1. XYZAL [Suspect]
     Indication: ARTHROPOD BITE
     Dosage: 5 MG PO
     Route: 048
     Dates: start: 20090810, end: 20090801
  2. CATAPRES [Concomitant]
  3. HYDROCHLOROTHIAZIDE [Concomitant]
  4. SINGULAIR [Concomitant]
  5. ACIPHEX [Concomitant]
  6. ASPIRIN [Concomitant]
  7. SYMBICORT [Concomitant]
  8. PATANASE [Concomitant]
  9. CLOBEX [Concomitant]

REACTIONS (3)
  - BLOOD PRESSURE INCREASED [None]
  - INCREASED APPETITE [None]
  - WEIGHT INCREASED [None]
